FAERS Safety Report 7572750-X (Version None)
Quarter: 2011Q2

REPORT INFORMATION
  Report Type: 
  Country: None (occurrence: None)
  Receive Date: 20110620
  Receipt Date: 20110606
  Transmission Date: 20111010
  Serious: Yes (Disabling)
  Sender: FDA-Public Use
  Company Number: 2011MA002498

PATIENT
  Age: 72 Year
  Sex: Male

DRUGS (9)
  1. FELODIPINE [Suspect]
     Dosage: 5 MG, QD, PO
     Route: 048
     Dates: start: 20101219, end: 20110201
  2. BISOPROLOL FUMARATE [Concomitant]
  3. ALFUZOSIN HCL [Concomitant]
  4. LISINOPRIL [Concomitant]
  5. AMLODIPINE BESYLATE [Suspect]
     Indication: HYPERTENSION
     Dosage: 10 MG, QD, PO
     Route: 048
  6. ATORVASTATIN [Concomitant]
  7. FINASTERIDE [Concomitant]
  8. ASPIRIN [Concomitant]
  9. LISINOPRIL [Concomitant]

REACTIONS (6)
  - DRUG INTERACTION [None]
  - MUSCULOSKELETAL PAIN [None]
  - METASTATIC NEOPLASM [None]
  - MYALGIA [None]
  - ARTHRALGIA [None]
  - DRUG PRESCRIBING ERROR [None]
